FAERS Safety Report 4914648-9 (Version None)
Quarter: 2006Q1

REPORT INFORMATION
  Report Type: 
  Country: None (occurrence: None)
  Receive Date: 20060216
  Receipt Date: 20051019
  Transmission Date: 20060701
  Serious: Yes (Other)
  Sender: FDA-Public Use
  Company Number: US-MERCK-0510USA07905

PATIENT
  Age: 54 Year
  Sex: Male
  Weight: 123 kg

DRUGS (9)
  1. VIOXX [Suspect]
     Route: 048
     Dates: start: 20001001, end: 20040801
  2. PLETAL [Concomitant]
     Route: 065
  3. PLAVIX [Concomitant]
     Route: 065
  4. LOTREL [Concomitant]
     Route: 065
  5. WELLBUTRIN [Concomitant]
     Route: 065
  6. ZOLOFT [Concomitant]
     Route: 065
  7. TRAZODONE HYDROCHLORIDE [Concomitant]
     Route: 065
  8. ALBUTEROL [Concomitant]
     Route: 065
  9. SEREVENT [Concomitant]
     Route: 065

REACTIONS (4)
  - CHEST PAIN [None]
  - DYSPNOEA [None]
  - PAIN IN EXTREMITY [None]
  - PULMONARY EMBOLISM [None]
